FAERS Safety Report 18399232 (Version 1)
Quarter: 2020Q4

REPORT INFORMATION
  Report Type: Spontaneous
  Country: US (occurrence: US)
  Receive Date: 20201019
  Receipt Date: 20201019
  Transmission Date: 20210114
  Serious: No
  Sender: FDA-Public Use
  Company Number: US-PFIZER INC-2020400388

PATIENT
  Age: 69 Year
  Sex: Female

DRUGS (2)
  1. PREGABALIN. [Suspect]
     Active Substance: PREGABALIN
     Indication: SPINAL DISORDER
  2. PREGABALIN. [Suspect]
     Active Substance: PREGABALIN
     Indication: PAIN
     Dosage: 50 MG, 2X/DAY (50MG, 1 CAPSULE BY MOUTH TWICE DAILY)
     Route: 048
     Dates: start: 202005

REACTIONS (1)
  - Drug ineffective [Unknown]
